FAERS Safety Report 13836291 (Version 1)
Quarter: 2017Q3

REPORT INFORMATION
  Report Type: Spontaneous
  Country: US (occurrence: US)
  Receive Date: 20170804
  Receipt Date: 20170804
  Transmission Date: 20171127
  Serious: No
  Sender: FDA-Public Use
  Company Number: GXBR2017US001145

PATIENT
  Sex: Male

DRUGS (1)
  1. ALPRAZOLAM TABLETS USP [Suspect]
     Active Substance: ALPRAZOLAM
     Dosage: 0.25 MG, UNK
     Route: 065

REACTIONS (3)
  - Depression [Unknown]
  - Abdominal pain upper [Unknown]
  - Rash pruritic [Recovering/Resolving]
